FAERS Safety Report 13025505 (Version 2)
Quarter: 2017Q1

REPORT INFORMATION
  Report Type: Spontaneous
  Country: IT (occurrence: IT)
  Receive Date: 20161214
  Receipt Date: 20170203
  Transmission Date: 20170428
  Serious: Yes (Other)
  Sender: FDA-Public Use
  Company Number: IT-ACCORD-046235

PATIENT
  Age: 60 Year
  Sex: Male
  Weight: 66 kg

DRUGS (2)
  1. GEMCITABINE/GEMCITABINE HYDROCHLORIDE [Suspect]
     Active Substance: GEMCITABINE\GEMCITABINE HYDROCHLORIDE
     Indication: ADENOCARCINOMA PANCREAS
     Dosage: PATIENT UNDERWENT DAY 1 ABRAXANE/GEMCITABINE (DAY 1-8-15) CYCLE 1 AND 3 AND ALSO DAY 15 WITH CYCLE 2
     Route: 042
     Dates: start: 20160420
  2. ABRAXANE [Suspect]
     Active Substance: PACLITAXEL
     Indication: ADENOCARCINOMA PANCREAS
     Dosage: PATIENT UNDERWENT DAY 1 ABRAXANE/GEMCITABINE (DAY 1-8-15) CYCLE 1 AND 3 AND ALSO DAY 15 WITH CYCLE 2
     Route: 042
     Dates: start: 20160420

REACTIONS (6)
  - Anaemia [Recovering/Resolving]
  - Thrombocytosis [Recovering/Resolving]
  - Diarrhoea [Recovering/Resolving]
  - Visual acuity reduced [Not Recovered/Not Resolved]
  - Thrombocytopenia [Not Recovered/Not Resolved]
  - Neutropenia [Recovering/Resolving]

NARRATIVE: CASE EVENT DATE: 20160422
